FAERS Safety Report 7617953-0 (Version None)
Quarter: 2011Q3

REPORT INFORMATION
  Report Type: 
  Country: None (occurrence: None)
  Receive Date: 20110718
  Receipt Date: 20110706
  Transmission Date: 20111222
  Serious: Yes (Other)
  Sender: FDA-Public Use
  Company Number: PHHY2010CA41850

PATIENT
  Sex: Female

DRUGS (2)
  1. EXJADE [Suspect]
     Indication: MYELODYSPLASTIC SYNDROME
     Dosage: 1550 MG, QD
     Route: 048
  2. EXJADE [Suspect]
     Dosage: 1250 MG, QD
     Route: 048

REACTIONS (7)
  - SERUM FERRITIN INCREASED [None]
  - URTICARIA [None]
  - RENAL IMPAIRMENT [None]
  - FATIGUE [None]
  - INFECTION [None]
  - ECZEMA [None]
  - DIARRHOEA [None]
